FAERS Safety Report 4518502-6 (Version None)
Quarter: 2004Q4

REPORT INFORMATION
  Report Type: 
  Country: None (occurrence: None)
  Receive Date: 20041201
  Receipt Date: 20041115
  Transmission Date: 20050328
  Serious: Yes (Hospitalization)
  Sender: FDA-Public Use
  Company Number: 206673

PATIENT
  Age: 42 Year
  Sex: Female

DRUGS (4)
  1. AVONEX [Suspect]
     Indication: MULTIPLE SCLEROSIS
     Dosage: 30 UG; QW; IM
     Route: 030
     Dates: start: 20011218
  2. BACLOFEN [Concomitant]
  3. ZANAFLEX [Concomitant]
  4. XANAX [Concomitant]

REACTIONS (8)
  - ABNORMAL BEHAVIOUR [None]
  - CARDIAC ARREST [None]
  - COMA [None]
  - FALL [None]
  - MEDICATION ERROR [None]
  - OVERDOSE [None]
  - RESPIRATORY ARREST [None]
  - TREMOR [None]
